FAERS Safety Report 15704217 (Version 1)
Quarter: 2018Q4

REPORT INFORMATION
  Report Type: Spontaneous
  Country: US (occurrence: US)
  Receive Date: 20181210
  Receipt Date: 20181210
  Transmission Date: 20190205
  Serious: Yes (Other)
  Sender: FDA-Public Use
  Company Number: None

PATIENT
  Age: 12 Year
  Sex: Female
  Weight: 35.1 kg

DRUGS (9)
  1. BACLOFEN. [Concomitant]
     Active Substance: BACLOFEN
  2. CLOBAZAM ORAL SUSPENSION [Suspect]
     Active Substance: CLOBAZAM
     Indication: EPILEPSY
     Dosage: ?          QUANTITY:1 ML;?
     Route: 048
     Dates: start: 20181120, end: 20181210
  3. ZYRTEC [Concomitant]
     Active Substance: CETIRIZINE HYDROCHLORIDE
  4. MC OIL [Concomitant]
  5. CLONAZEPAM. [Concomitant]
     Active Substance: CLONAZEPAM
  6. REMERON [Concomitant]
     Active Substance: MIRTAZAPINE
  7. BIRTH CONTROL [Concomitant]
     Active Substance: UNSPECIFIED INGREDIENT
  8. KEPPRA [Concomitant]
     Active Substance: LEVETIRACETAM
  9. ATIVAN [Concomitant]
     Active Substance: LORAZEPAM

REACTIONS (4)
  - Seizure [None]
  - Product substitution issue [None]
  - Fall [None]
  - Tremor [None]

NARRATIVE: CASE EVENT DATE: 20181210
